FAERS Safety Report 4310975-7 (Version None)
Quarter: 2004Q1

REPORT INFORMATION
  Report Type: 
  Country: None (occurrence: None)
  Receive Date: 20040304
  Receipt Date: 20040225
  Transmission Date: 20041129
  Serious: Yes (Death, Hospitalization)
  Sender: FDA-Public Use
  Company Number: PHNU2004DE01009

PATIENT
  Sex: Female

DRUGS (1)
  1. GLEEVEC [Suspect]
     Indication: GASTROINTESTINAL STROMAL TUMOUR
     Dosage: 600 TO 800 MG/DAY
     Route: 048
     Dates: start: 20031201, end: 20040101

REACTIONS (8)
  - ABDOMINAL OPERATION [None]
  - BIOPSY BONE MARROW ABNORMAL [None]
  - BONE MARROW DEPRESSION [None]
  - COAGULOPATHY [None]
  - DEATH [None]
  - ILEUS [None]
  - LEUKOPENIA [None]
  - TUMOUR NECROSIS [None]
